FAERS Safety Report 16819952 (Version 4)
Quarter: 2020Q3

REPORT INFORMATION
  Report Type: Report from Study
  Country: US (occurrence: US)
  Receive Date: 20190918
  Receipt Date: 20200806
  Transmission Date: 20201102
  Serious: No
  Sender: FDA-Public Use
  Company Number: PHEH2019US038254

PATIENT
  Sex: Male

DRUGS (2)
  1. ENTRESTO [Suspect]
     Active Substance: SACUBITRIL\VALSARTAN
     Route: 048
  2. ENTRESTO [Suspect]
     Active Substance: SACUBITRIL\VALSARTAN
     Indication: CARDIAC FAILURE
     Dosage: UNK, BID
     Route: 048

REACTIONS (7)
  - Hypotension [Unknown]
  - Dizziness [Unknown]
  - Sluggishness [Unknown]
  - Stress [Unknown]
  - Malaise [Unknown]
  - Dyspnoea [Unknown]
  - Somnolence [Unknown]
